FAERS Safety Report 7014600-6 (Version None)
Quarter: 2010Q3

REPORT INFORMATION
  Report Type: 
  Country: None (occurrence: None)
  Receive Date: 20100927
  Receipt Date: 20100915
  Transmission Date: 20110219
  Serious: Yes (Hospitalization, Other)
  Sender: FDA-Public Use
  Company Number: US-ROCHE-695887

PATIENT
  Sex: Male
  Weight: 70.8 kg

DRUGS (1)
  1. ACCUTANE [Suspect]
     Indication: ACNE
     Dosage: OTHER INDICATION: CYSTIC LESIONS
     Route: 048
     Dates: start: 19961115, end: 19970418

REACTIONS (6)
  - BIPOLAR I DISORDER [None]
  - CROHN'S DISEASE [None]
  - DRY SKIN [None]
  - HEADACHE [None]
  - INFLAMMATORY BOWEL DISEASE [None]
  - SMALL INTESTINAL OBSTRUCTION [None]
